FAERS Safety Report 4435449-4 (Version None)
Quarter: 2004Q3

REPORT INFORMATION
  Report Type: 
  Country: None (occurrence: None)
  Receive Date: 20040826
  Receipt Date: 20040813
  Transmission Date: 20050211
  Serious: Yes (Other)
  Sender: FDA-Public Use
  Company Number: S04-AUT-03818-01

PATIENT
  Age: 22 Year
  Sex: Female

DRUGS (2)
  1. LEXAPRO [Suspect]
     Indication: DEPRESSION
     Dosage: 10 MG QD PO
     Route: 048
     Dates: start: 20040414, end: 20040429
  2. RISPERDAL [Concomitant]

REACTIONS (1)
  - GRAND MAL CONVULSION [None]
